FAERS Safety Report 16892085 (Version 1)
Quarter: 2019Q4

REPORT INFORMATION
  Report Type: Report from Study
  Country: US (occurrence: US)
  Receive Date: 20191007
  Receipt Date: 20191007
  Transmission Date: 20200122
  Serious: Yes (Other)
  Sender: FDA-Public Use
  Company Number: US-SHIRE-US201915594

PATIENT
  Age: 27 Year
  Sex: Female

DRUGS (6)
  1. TYMLOS [Concomitant]
     Active Substance: ABALOPARATIDE
  2. CALCITRIOL. [Concomitant]
     Active Substance: CALCITRIOL
  3. CALCIUM [Concomitant]
     Active Substance: CALCIUM
  4. NATPARA (PARATHYROID HORMONE) [Suspect]
     Active Substance: PARATHYROID HORMONE
     Dosage: 100 UNK
     Route: 058
  5. NATPARA (PARATHYROID HORMONE) [Suspect]
     Active Substance: PARATHYROID HORMONE
     Indication: HYPOCALCAEMIA
     Dosage: 75 MICROGRAM, 1X/DAY:QD
     Route: 058
     Dates: start: 20181109
  6. VITAMIN D2 [Concomitant]
     Active Substance: ERGOCALCIFEROL

REACTIONS (7)
  - Pain [Unknown]
  - Malaise [Unknown]
  - Blood calcium decreased [Unknown]
  - Condition aggravated [Unknown]
  - Dyspepsia [Unknown]
  - Feeling abnormal [Unknown]
  - Memory impairment [Unknown]

NARRATIVE: CASE EVENT DATE: 20190513
